FAERS Safety Report 5803483-5 (Version None)
Quarter: 2008Q3

REPORT INFORMATION
  Report Type: 
  Country: None (occurrence: None)
  Receive Date: 20080708
  Receipt Date: 20080703
  Transmission Date: 20090109
  Serious: Yes (Death, Hospitalization, Other)
  Sender: FDA-Public Use
  Company Number: PHEH2006US04396

PATIENT
  Sex: Male
  Weight: 70.748 kg

DRUGS (9)
  1. EXJADE [Suspect]
     Indication: IRON OVERLOAD
  2. EXJADE [Suspect]
     Indication: SICKLE CELL ANAEMIA
  3. PROCARDIA XL [Concomitant]
     Indication: HYPERTENSION
     Dosage: 90 MG, QD
     Route: 048
  4. SODIUM BICARBONATE [Concomitant]
     Indication: METABOLIC ACIDOSIS
     Dosage: 650 MG, BID
     Route: 048
  5. CALCIUM CARBONATE [Concomitant]
     Indication: RENAL OSTEODYSTROPHY
     Dosage: 650 MG, TID
     Route: 048
  6. CELLCEPT [Concomitant]
     Indication: RENAL TRANSPLANT
     Dosage: 250 MG, Q12H
     Route: 048
  7. FOLIC ACID [Concomitant]
     Indication: HAEMOLYTIC ANAEMIA
     Dosage: 1 MG, QD
     Route: 048
  8. PREDNISONE TAB [Concomitant]
     Indication: RENAL TRANSPLANT
     Dosage: 20 MG, QD
     Route: 048
  9. DILAUDID [Concomitant]
     Indication: PAIN
     Dosage: 4 MG, Q 4H PRN
     Route: 048

REACTIONS (27)
  - ALANINE AMINOTRANSFERASE INCREASED [None]
  - ASCITES [None]
  - ASPARTATE AMINOTRANSFERASE INCREASED [None]
  - BACK PAIN [None]
  - BILE DUCT STENOSIS [None]
  - BILIARY DILATATION [None]
  - BILIARY SPHINCTEROTOMY [None]
  - BLOOD ALKALINE PHOSPHATASE INCREASED [None]
  - BLOOD URINE PRESENT [None]
  - COLITIS [None]
  - DEHYDRATION [None]
  - DIALYSIS [None]
  - ENDOSCOPY UPPER GASTROINTESTINAL TRACT ABNORMAL [None]
  - EXCHANGE BLOOD TRANSFUSION [None]
  - FLUID REPLACEMENT [None]
  - GASTROINTESTINAL HAEMORRHAGE [None]
  - GENERALISED OEDEMA [None]
  - HEPATIC FAILURE [None]
  - HYPERBILIRUBINAEMIA [None]
  - KLEBSIELLA SEPSIS [None]
  - NAUSEA [None]
  - PROTEIN URINE PRESENT [None]
  - PYREXIA [None]
  - RENAL FAILURE CHRONIC [None]
  - SICKLE CELL ANAEMIA WITH CRISIS [None]
  - URINE OUTPUT DECREASED [None]
  - VOMITING [None]
